FAERS Safety Report 9162795 (Version 1)
Quarter: 2013Q1

REPORT INFORMATION
  Report Type: Spontaneous
  Country: US (occurrence: None)
  Receive Date: 20130313
  Receipt Date: 20130313
  Transmission Date: 20140127
  Serious: No
  Sender: FDA-Public Use
  Company Number: None

PATIENT
  Sex: Female
  Weight: 56.7 kg

DRUGS (1)
  1. ALENDRONATE SODIUM [Suspect]
     Route: 048
     Dates: start: 20120412, end: 201210

REACTIONS (5)
  - Arthralgia [None]
  - Musculoskeletal pain [None]
  - Back pain [None]
  - Gait disturbance [None]
  - Insomnia [None]
